FAERS Safety Report 19357602 (Version 3)
Quarter: 2021Q4

REPORT INFORMATION
  Report Type: Report from Study
  Country: KR (occurrence: KR)
  Receive Date: 20210601
  Receipt Date: 20211115
  Transmission Date: 20220303
  Serious: Yes (Other)
  Sender: FDA-Public Use
  Company Number: KR-KYOWAKIRIN-2021AKK009194

PATIENT
  Age: 69 Year
  Sex: Male

DRUGS (41)
  1. FILGRASTIM [Suspect]
     Active Substance: FILGRASTIM
     Indication: Product used for unknown indication
     Dosage: 0.7 UNK, QD
     Route: 065
     Dates: start: 20180309, end: 20180315
  2. TAPENTADOL [Concomitant]
     Active Substance: TAPENTADOL
     Indication: Product used for unknown indication
     Dosage: 50 MILLIGRAM, QD
     Dates: start: 20180125, end: 20180129
  3. TAPENTADOL [Concomitant]
     Active Substance: TAPENTADOL
     Dosage: 100 MILLIGRAM, QD
     Dates: start: 20180130, end: 20180410
  4. AMLODIPINE [Concomitant]
     Active Substance: AMLODIPINE BESYLATE
     Indication: Product used for unknown indication
     Dosage: 5 MILLIGRAM, QD
     Dates: start: 20180119, end: 20180314
  5. BICALUTAMIDE [Concomitant]
     Active Substance: BICALUTAMIDE
     Indication: Product used for unknown indication
     Dosage: 50 MILLIGRAM, QD
     Dates: start: 20180131, end: 20180410
  6. CARVEDILOL [Concomitant]
     Active Substance: CARVEDILOL
     Indication: Product used for unknown indication
     Dosage: 25 MILLIGRAM, QD
     Dates: start: 20180223, end: 20180314
  7. CHLORHEXIDINE [Concomitant]
     Active Substance: CHLORHEXIDINE
     Indication: Product used for unknown indication
     Dosage: 100 UNK, QD
     Dates: start: 20180309, end: 20180410
  8. CHLORPHENIRAMINE MALEATE [Concomitant]
     Active Substance: CHLORPHENIRAMINE MALEATE
     Indication: Product used for unknown indication
     Dosage: 2 UNK, QD
     Dates: start: 20180205, end: 20180205
  9. CHLORPHENIRAMINE MALEATE [Concomitant]
     Active Substance: CHLORPHENIRAMINE MALEATE
     Dosage: 2 UNK, QD
     Dates: start: 20180225, end: 20180225
  10. CHLORPHENIRAMINE MALEATE [Concomitant]
     Active Substance: CHLORPHENIRAMINE MALEATE
     Dosage: 2 UNK, QD
     Dates: start: 20180306, end: 20180306
  11. DOXOFYLLINE [Concomitant]
     Active Substance: DOXOFYLLINE
     Indication: Product used for unknown indication
     Dosage: 400 MILLIGRAM, QD
     Dates: start: 20180302, end: 20180410
  12. EPROSARTAN [Concomitant]
     Active Substance: EPROSARTAN
     Indication: Product used for unknown indication
     Dosage: 600 MILLIGRAM, QD
     Dates: start: 20180119, end: 20180314
  13. FAMCICLOVIR [Concomitant]
     Active Substance: FAMCICLOVIR
     Indication: Product used for unknown indication
     Dosage: 500 MILLIGRAM, QD
     Dates: start: 20180304, end: 20180309
  14. FLUCONAZOLE [Concomitant]
     Active Substance: FLUCONAZOLE
     Indication: Product used for unknown indication
     Dosage: 50 MILLIGRAM, QD
     Dates: start: 20180223, end: 20180223
  15. LACTULOSE [Concomitant]
     Active Substance: LACTULOSE
     Indication: Product used for unknown indication
     Dosage: 15 UNK, QD
     Dates: start: 20180210, end: 20180211
  16. LACTULOSE [Concomitant]
     Active Substance: LACTULOSE
     Dosage: 15 UNK, QD
     Dates: start: 20180301, end: 20180303
  17. LANSOPRAZOLE [Concomitant]
     Active Substance: LANSOPRAZOLE
     Indication: Product used for unknown indication
     Dosage: 15 MILLIGRAM, QD
     Dates: start: 20180119, end: 20180406
  18. LEVOFLOXACIN [Concomitant]
     Active Substance: LEVOFLOXACIN
     Indication: Product used for unknown indication
     Dosage: 150 UNK, QD
     Dates: start: 20180202, end: 20180202
  19. LIDOCAINE [Concomitant]
     Active Substance: LIDOCAINE
     Indication: Product used for unknown indication
     Dosage: 1 UNK, QD
     Dates: start: 20180227, end: 20180227
  20. MAGNESIUM OXIDE [Concomitant]
     Active Substance: MAGNESIUM OXIDE
     Indication: Product used for unknown indication
     Dosage: 500 MILLIGRAM, QD
     Dates: start: 20180206, end: 20180317
  21. MEGESTROL [Concomitant]
     Active Substance: MEGESTROL
     Indication: Product used for unknown indication
     Dosage: 5.2 UNK, QD
     Dates: start: 20180126, end: 20180314
  22. MONTELUKAST [Concomitant]
     Active Substance: MONTELUKAST SODIUM
     Indication: Product used for unknown indication
     Dosage: 10 MILLIGRAM, QD
     Dates: start: 20180127, end: 20180410
  23. MUPIROCIN [Concomitant]
     Active Substance: MUPIROCIN
     Indication: Product used for unknown indication
     Dosage: 10 UNK, QD
     Dates: start: 20180306, end: 20180314
  24. NYSTATIN [Concomitant]
     Active Substance: NYSTATIN
     Indication: Product used for unknown indication
     Dosage: UNK UNK, QD
     Dates: start: 20180207, end: 20180222
  25. NYSTATIN [Concomitant]
     Active Substance: NYSTATIN
     Dosage: UNK UNK, QD
     Dates: start: 20180223, end: 20180314
  26. OXYCODONE [Concomitant]
     Active Substance: OXYCODONE
     Indication: Product used for unknown indication
     Dosage: 5 MILLIGRAM, QD
     Dates: start: 20180226, end: 20180226
  27. OXYCODONE [Concomitant]
     Active Substance: OXYCODONE
     Dosage: 10 MILLIGRAM, QD
     Dates: start: 20180305, end: 20180305
  28. OXYCODONE [Concomitant]
     Active Substance: OXYCODONE
     Dosage: 10 MILLIGRAM, QD
     Dates: start: 20180309, end: 20180309
  29. PIPERACILLIN [Concomitant]
     Active Substance: PIPERACILLIN
     Indication: Product used for unknown indication
     Dosage: 4.5 UNK, QD
     Dates: start: 20180223, end: 20180309
  30. POTASSIUM PHOSPHATE, DIBASIC [Concomitant]
     Active Substance: POTASSIUM PHOSPHATE, DIBASIC
     Indication: Product used for unknown indication
     Dosage: 20 UNK, QD
     Dates: start: 20180224, end: 20180406
  31. PREGABALIN [Concomitant]
     Active Substance: PREGABALIN
     Indication: Product used for unknown indication
     Dosage: 75 MILLIGRAM, QD
     Dates: start: 20180305, end: 20180314
  32. PROPACETAMOL [Concomitant]
     Active Substance: PROPACETAMOL
     Indication: Product used for unknown indication
     Dosage: 1 UNK, QD
     Dates: start: 20180223, end: 20180223
  33. FLUTICASONE PROPIONATE\SALMETEROL XINAFOATE [Concomitant]
     Active Substance: FLUTICASONE PROPIONATE\SALMETEROL XINAFOATE
     Indication: Product used for unknown indication
     Dosage: UNK UNK, QD
     Dates: start: 20180126, end: 20180410
  34. TAMSULOSIN [Concomitant]
     Active Substance: TAMSULOSIN
     Indication: Product used for unknown indication
     Dosage: 0.2 MILLIGRAM, QD
     Dates: start: 20180119, end: 20180314
  35. COSYNTROPIN [Concomitant]
     Active Substance: COSYNTROPIN
     Indication: Product used for unknown indication
     Dosage: 1 UNK, QD
     Dates: start: 20180305, end: 20180305
  36. TIOTROPIUM BROMIDE [Concomitant]
     Active Substance: TIOTROPIUM BROMIDE
     Indication: Product used for unknown indication
     Dosage: 1 UNK, QD
     Dates: start: 20180126, end: 20180410
  37. TRAMADOL [Concomitant]
     Active Substance: TRAMADOL
     Indication: Product used for unknown indication
     Dosage: 1 UNK, QD
     Dates: start: 20180204, end: 20180204
  38. TRAMADOL [Concomitant]
     Active Substance: TRAMADOL
     Dosage: 1 UNK, QD
     Dates: start: 20180228, end: 20180304
  39. ACETAMINOPHEN\TRAMADOL [Concomitant]
     Active Substance: ACETAMINOPHEN\TRAMADOL
     Indication: Product used for unknown indication
     Dosage: 1 DOSAGE FORM, QD
     Dates: start: 20180120, end: 20180406
  40. URSODIOL [Concomitant]
     Active Substance: URSODIOL
     Indication: Product used for unknown indication
     Dosage: 100 MILLIGRAM, QD
     Dates: start: 20180125, end: 20180406
  41. ZOLEDRONIC ACID [Concomitant]
     Active Substance: ZOLEDRONIC ACID
     Indication: Product used for unknown indication
     Dosage: 4 MILLIGRAM, QD
     Dates: start: 20180301, end: 20180301

REACTIONS (1)
  - Neutropenia [Recovered/Resolved]

NARRATIVE: CASE EVENT DATE: 20180309
